FAERS Safety Report 19941071 (Version 1)
Quarter: 2021Q4

REPORT INFORMATION
  Report Type: Other
  Country: US (occurrence: US)
  Receive Date: 20211012
  Receipt Date: 20211012
  Transmission Date: 20220304
  Serious: Yes (Death)
  Sender: FDA-Public Use
  Company Number: US-ROCHE-2931934

PATIENT
  Sex: Male

DRUGS (1)
  1. CELLCEPT [Suspect]
     Active Substance: MYCOPHENOLATE MOFETIL\MYCOPHENOLATE MOFETIL HYDROCHLORIDE
     Indication: Pemphigoid
     Dosage: TAKE 2 TABS (1000MG) BY MOUTH BID
     Route: 048

REACTIONS (2)
  - Death [Fatal]
  - Off label use [Unknown]
